FAERS Safety Report 17975248 (Version 1)
Quarter: 2020Q3

REPORT INFORMATION
  Report Type: Spontaneous
  Country: IT (occurrence: IT)
  Receive Date: 20200702
  Receipt Date: 20200702
  Transmission Date: 20201103
  Serious: Yes (Other)
  Sender: FDA-Public Use
  Company Number: IT-GLAXOSMITHKLINE-IT2020117098

PATIENT
  Age: 70 Year
  Sex: Female

DRUGS (3)
  1. VOLTFAST [Suspect]
     Active Substance: DICLOFENAC
     Indication: PAIN IN EXTREMITY
     Dosage: 50 MG, QD
     Route: 048
     Dates: start: 20200509, end: 20200512
  2. DIBASE [Concomitant]
     Active Substance: CHOLECALCIFEROL
     Indication: PRODUCT USED FOR UNKNOWN INDICATION
     Dosage: UNK (50.000 U.I./2,5 ML)
     Route: 065
  3. NATECAL D3 [Concomitant]
     Active Substance: CALCIUM CARBONATE\CHOLECALCIFEROL
     Indication: PRODUCT USED FOR UNKNOWN INDICATION
     Dosage: UNK ( 600 MG + 400 U.I.)
     Route: 065

REACTIONS (5)
  - Face oedema [Recovered/Resolved]
  - Strangury [Recovered/Resolved]
  - Lip oedema [Recovered/Resolved]
  - Skin burning sensation [Recovered/Resolved]
  - Periorbital oedema [Recovered/Resolved]

NARRATIVE: CASE EVENT DATE: 20200512
